FAERS Safety Report 15807752 (Version 2)
Quarter: 2019Q1

REPORT INFORMATION
  Report Type: Spontaneous
  Country: IT (occurrence: IT)
  Receive Date: 20190110
  Receipt Date: 20190211
  Transmission Date: 20190417
  Serious: Yes (Hospitalization)
  Sender: FDA-Public Use
  Company Number: IT-PFIZER INC-2019011204

PATIENT
  Age: 15 Year
  Sex: Female

DRUGS (2)
  1. ANSIOLIN [Suspect]
     Active Substance: DIAZEPAM
     Dosage: 1 DF, SINGLE
     Route: 048
     Dates: start: 20180825, end: 20180825
  2. XANAX [Suspect]
     Active Substance: ALPRAZOLAM
     Dosage: 1 MG, SINGLE (4 TABLETS 0.25 MG)
     Dates: start: 20180825, end: 20180825

REACTIONS (3)
  - Bradyphrenia [Unknown]
  - Product use issue [Unknown]
  - Gait disturbance [Unknown]

NARRATIVE: CASE EVENT DATE: 20180825
